FAERS Safety Report 16756164 (Version 5)
Quarter: 2019Q4

REPORT INFORMATION
  Report Type: Spontaneous
  Country: FR (occurrence: FR)
  Receive Date: 20190829
  Receipt Date: 20191028
  Transmission Date: 20200122
  Serious: Yes (Other)
  Sender: FDA-Public Use
  Company Number: PHHY2019FR198510

PATIENT
  Age: 40 Year
  Sex: Male

DRUGS (4)
  1. METRONIDAZOLE SANDOZ [Suspect]
     Active Substance: METRONIDAZOLE
     Indication: PULMONARY INFARCTION
     Dosage: UNKNOWN
     Route: 048
  2. PIPERACILLIN AND TAZOBACTAM [Suspect]
     Active Substance: PIPERACILLIN SODIUM\TAZOBACTAM SODIUM
     Indication: PULMONARY INFARCTION
     Dosage: UNKNOWN
     Route: 042
  3. CIPROFLOXACIN. [Suspect]
     Active Substance: CIPROFLOXACIN
     Indication: PULMONARY INFARCTION
     Dosage: UNKNOWN
     Route: 048
  4. CEFTRIAXONE. [Suspect]
     Active Substance: CEFTRIAXONE
     Indication: PULMONARY INFARCTION
     Dosage: UNKNOWN
     Route: 042

REACTIONS (5)
  - Ocular hyperaemia [Unknown]
  - Ocular hypertension [Unknown]
  - Eye pain [Unknown]
  - Iris transillumination defect [Unknown]
  - Product use in unapproved indication [Unknown]

NARRATIVE: CASE EVENT DATE: 201610
